FAERS Safety Report 19021121 (Version 1)
Quarter: 2021Q1

REPORT INFORMATION
  Report Type: Spontaneous
  Country: KR (occurrence: KR)
  Receive Date: 20210317
  Receipt Date: 20210317
  Transmission Date: 20210420
  Serious: Yes (Hospitalization)
  Sender: FDA-Public Use
  Company Number: KR-ALLERGAN-2110910US

PATIENT
  Sex: Male

DRUGS (2)
  1. NASONEX [Concomitant]
     Active Substance: MOMETASONE FUROATE
     Indication: RHINITIS
     Dosage: FROM TIME TO TIME
  2. COMBIGAN [Suspect]
     Active Substance: BRIMONIDINE TARTRATE\TIMOLOL MALEATE
     Indication: INTRAOCULAR PRESSURE TEST ABNORMAL
     Dosage: 2 GTT, BID
     Route: 047
     Dates: start: 202001

REACTIONS (9)
  - Conjunctival haemorrhage [Recovered/Resolved]
  - Erythema of eyelid [Recovering/Resolving]
  - Blepharitis [Not Recovered/Not Resolved]
  - Skin maceration [Recovering/Resolving]
  - Swelling of eyelid [Recovering/Resolving]
  - Upper gastrointestinal haemorrhage [Unknown]
  - Eye pruritus [Not Recovered/Not Resolved]
  - Milia [Not Recovered/Not Resolved]
  - Eyelids pruritus [Not Recovered/Not Resolved]

NARRATIVE: CASE EVENT DATE: 202003
